FAERS Safety Report 6485187-1 (Version None)
Quarter: 2009Q4

REPORT INFORMATION
  Report Type: 
  Country: None (occurrence: None)
  Receive Date: 20091209
  Receipt Date: 20090613
  Transmission Date: 20100525
  Serious: No
  Sender: FDA-Public Use
  Company Number: US-AMGEN-KDL351588

PATIENT
  Sex: Female

DRUGS (2)
  1. ENBREL [Suspect]
     Indication: RHEUMATOID ARTHRITIS
     Route: 058
     Dates: start: 20090525
  2. METHOTREXATE [Concomitant]
     Dates: start: 19990101

REACTIONS (2)
  - HYPERHIDROSIS [None]
  - NASAL CONGESTION [None]
